FAERS Safety Report 5657896-5 (Version None)
Quarter: 2008Q1

REPORT INFORMATION
  Report Type: 
  Country: None (occurrence: None)
  Receive Date: 20080305
  Receipt Date: 20080218
  Transmission Date: 20080703
  Serious: Yes (Life-Threatening, Hospitalization, Disabling)
  Sender: FDA-Public Use
  Company Number: 2008S1002690

PATIENT
  Age: 63 Year
  Sex: Male

DRUGS (11)
  1. WARFARIN SODIUM [Suspect]
     Indication: ATRIAL FIBRILLATION
     Dosage: ORAL
     Route: 048
  2. ASPIRIN [Suspect]
     Indication: MYOCARDIAL INFARCTION
     Dosage: 75 MG; DAILY; ORAL
     Route: 048
     Dates: start: 20000101
  3. ADCAL-D3 (LEKOVIT CA) [Concomitant]
  4. BISOPROLOL FUMARATE [Concomitant]
  5. CITALOPRAM HYDROBROMIDE [Concomitant]
  6. FUROSEMIDE [Concomitant]
  7. LOPERAMIDE [Concomitant]
  8. OMEPRAZOLE [Concomitant]
  9. RAMIPRIL (RAMIIPRIL) [Concomitant]
  10. SIMVASTATIN [Concomitant]
  11. SPIRONOLACTONE [Concomitant]

REACTIONS (3)
  - HAEMORRHAGE INTRACRANIAL [None]
  - HYDROCEPHALUS [None]
  - SYNCOPE [None]
